FAERS Safety Report 8501043-9 (Version None)
Quarter: 2012Q2

REPORT INFORMATION
  Report Type: 
  Country: None (occurrence: None)
  Receive Date: 20120405
  Receipt Date: 20110214
  Transmission Date: 20120825
  Serious: Yes (Other)
  Sender: FDA-Public Use
  Company Number: PHHY2011US13615

PATIENT

DRUGS (3)
  1. RECLAST [Suspect]
     Indication: OSTEOPOROSIS
     Dosage: INFUSION
  2. BETA BLOCKERS AGENTS (NO INGREDIENTS/SUBSTANCES) [Concomitant]
  3. BONIVA [Concomitant]

REACTIONS (3)
  - BLOOD PRESSURE INCREASED [None]
  - VERTIGO [None]
  - BONE DENSITY DECREASED [None]
